FAERS Safety Report 21389373 (Version 1)
Quarter: 2022Q3

REPORT INFORMATION
  Report Type: Spontaneous
  Country: DE (occurrence: DE)
  Receive Date: 20220929
  Receipt Date: 20220929
  Transmission Date: 20221027
  Serious: Yes (Hospitalization)
  Sender: FDA-Public Use
  Company Number: DE-SUN PHARMACEUTICAL INDUSTRIES LTD-2022RR-356371

PATIENT
  Age: 55 Year
  Sex: Female
  Weight: 85 kg

DRUGS (5)
  1. GEMCITABINE [Suspect]
     Active Substance: GEMCITABINE
     Indication: Product used for unknown indication
     Dosage: NK
     Route: 040
  2. CISPLATIN [Suspect]
     Active Substance: CISPLATIN
     Indication: Product used for unknown indication
     Dosage: NK
     Route: 040
  3. QUETIAPINE [Concomitant]
     Active Substance: QUETIAPINE
     Indication: Product used for unknown indication
     Dosage: 50 MG, 0-0-1-0, TABLET
     Route: 048
  4. POTASSIUM IODIDE [Concomitant]
     Active Substance: POTASSIUM IODIDE
     Indication: Product used for unknown indication
     Dosage: 100 MICROG, 1-0-0-0, TABLET
     Route: 048
  5. CHOLECALCIFEROL [Concomitant]
     Active Substance: CHOLECALCIFEROL
     Indication: Product used for unknown indication
     Dosage: 20000 IU, WEDNESDAY WEEK 1, CAPSULE
     Route: 048

REACTIONS (4)
  - Systemic infection [Unknown]
  - Thrombocytopenia [Unknown]
  - Cough [Unknown]
  - General physical health deterioration [Unknown]
